FAERS Safety Report 4755261-6 (Version None)
Quarter: 2005Q3

REPORT INFORMATION
  Report Type: 
  Country: None (occurrence: None)
  Receive Date: 20050829
  Receipt Date: 20050414
  Transmission Date: 20060218
  Serious: Yes (Hospitalization, Disabling, Other)
  Sender: FDA-Public Use
  Company Number: US-MERCK-0504USA02882

PATIENT
  Age: 50 Year
  Sex: Male
  Weight: 59 kg

DRUGS (8)
  1. VIOXX [Suspect]
     Indication: ARTHRITIS
     Route: 048
     Dates: start: 20020501, end: 20021101
  2. VIOXX [Suspect]
     Indication: ARTHRALGIA
     Route: 048
     Dates: start: 20020501, end: 20021101
  3. ASPIRIN [Concomitant]
     Route: 065
  4. ALBUTEROL [Concomitant]
     Indication: EMPHYSEMA
     Route: 065
  5. IBUPROFEN [Concomitant]
     Indication: ARTHRALGIA
     Route: 065
  6. IBUPROFEN [Concomitant]
     Indication: BACK PAIN
     Route: 065
  7. IPRATROPIUM BROMIDE [Concomitant]
     Indication: EMPHYSEMA
     Route: 065
  8. PRILOSEC [Concomitant]
     Indication: GASTROOESOPHAGEAL REFLUX DISEASE
     Route: 065

REACTIONS (4)
  - CEREBROVASCULAR ACCIDENT [None]
  - HYPERTENSION [None]
  - PRESCRIBED OVERDOSE [None]
  - SLEEP APNOEA SYNDROME [None]
